FAERS Safety Report 22523113 (Version 1)
Quarter: 2023Q2

REPORT INFORMATION
  Report Type: Spontaneous
  Country: ES (occurrence: ES)
  Receive Date: 20230606
  Receipt Date: 20230606
  Transmission Date: 20230722
  Serious: Yes (Other)
  Sender: FDA-Public Use
  Company Number: ES-CELLTRION INC.-2023ES011261

PATIENT

DRUGS (4)
  1. RITUXIMAB [Suspect]
     Active Substance: RITUXIMAB
     Indication: Autoimmune disorder
  2. TOZINAMERAN [Suspect]
     Active Substance: TOZINAMERAN
     Indication: COVID-19 immunisation
     Dosage: FIRST DOSE
  3. TOZINAMERAN [Suspect]
     Active Substance: TOZINAMERAN
     Dosage: SECOND DOSE
  4. TOZINAMERAN [Suspect]
     Active Substance: TOZINAMERAN
     Dosage: THIRD DOSE

REACTIONS (2)
  - COVID-19 [Unknown]
  - Humoral immune defect [Unknown]
